FAERS Safety Report 14124761 (Version 2)
Quarter: 2017Q4

REPORT INFORMATION
  Report Type: Spontaneous
  Country: US (occurrence: US)
  Receive Date: 20171025
  Receipt Date: 20171127
  Transmission Date: 20180321
  Serious: Yes (Other)
  Sender: FDA-Public Use
  Company Number: US-BRISTOL-MYERS SQUIBB COMPANY-BMS-2017-096025

PATIENT
  Sex: Female

DRUGS (1)
  1. ABILIFY [Suspect]
     Active Substance: ARIPIPRAZOLE
     Indication: BIPOLAR DISORDER
     Dosage: 10 MG, QD
     Route: 065
     Dates: start: 2013, end: 2015

REACTIONS (8)
  - Gambling [Recovered/Resolved]
  - Mental disorder [Unknown]
  - Compulsive hoarding [Recovered/Resolved]
  - Emotional distress [Unknown]
  - Compulsive shopping [Recovered/Resolved]
  - Brain injury [Unknown]
  - Eating disorder [Recovered/Resolved]
  - Injury [Unknown]
